FAERS Safety Report 22323512 (Version 1)
Quarter: 2023Q2

REPORT INFORMATION
  Report Type: Spontaneous
  Country: US (occurrence: None)
  Receive Date: 20230512
  Receipt Date: 20230512
  Transmission Date: 20230721
  Serious: Yes (Hospitalization)
  Sender: FDA-Public Use
  Company Number: None

PATIENT
  Sex: Male

DRUGS (2)
  1. BRAFTOVI [Suspect]
     Active Substance: ENCORAFENIB
     Indication: Colon cancer
     Dosage: FREQUENCY : DAILY;?
     Route: 048
  2. OXYCODONE [Suspect]
     Active Substance: OXYCODONE

REACTIONS (4)
  - Abdominal pain upper [None]
  - Constipation [None]
  - Dysuria [None]
  - Therapy interrupted [None]
